FAERS Safety Report 19472152 (Version 1)
Quarter: 2021Q2

REPORT INFORMATION
  Report Type: Spontaneous
  Country: FR (occurrence: FR)
  Receive Date: 20210629
  Receipt Date: 20210629
  Transmission Date: 20210717
  Serious: Yes (Hospitalization)
  Sender: FDA-Public Use
  Company Number: FR-ACCORD-227106

PATIENT
  Age: 57 Year
  Sex: Male
  Weight: 85 kg

DRUGS (16)
  1. ALPRAZOLAM. [Concomitant]
     Active Substance: ALPRAZOLAM
  2. CEFEPIME [Concomitant]
     Active Substance: CEFEPIME HYDROCHLORIDE
  3. BISOPROLOL [Concomitant]
     Active Substance: BISOPROLOL
  4. LEVOFLOXACIN/LEVOFLOXACIN MESYLATE [Suspect]
     Active Substance: LEVOFLOXACIN
     Indication: ANTIBIOTIC THERAPY
     Dosage: 750 MG IN THE MORNING
     Route: 048
     Dates: start: 20210126, end: 20210219
  5. LYRICA [Concomitant]
     Active Substance: PREGABALIN
  6. ZOPICLONE [Concomitant]
     Active Substance: ZOPICLONE
  7. DAPTOMYCIN. [Suspect]
     Active Substance: DAPTOMYCIN
     Indication: ANTIBIOTIC THERAPY
     Dates: start: 20210126, end: 20210219
  8. LEVOFLOXACIN. [Concomitant]
     Active Substance: LEVOFLOXACIN
  9. ALLOPURINOL. [Concomitant]
     Active Substance: ALLOPURINOL
  10. CEFEPIME [Suspect]
     Active Substance: CEFEPIME HYDROCHLORIDE
     Indication: ANTIBIOTIC THERAPY
     Dosage: 2 G 3 * / DAY
     Route: 048
     Dates: start: 20210126, end: 20210219
  11. PARACETAMOL [Concomitant]
     Active Substance: ACETAMINOPHEN
  12. SPIRONOLACTONE. [Concomitant]
     Active Substance: SPIRONOLACTONE
     Dosage: 25 MG, SCORED FILM?COATED TABLET
  13. METFORMIN [Concomitant]
     Active Substance: METFORMIN HYDROCHLORIDE
     Dosage: 1000 MG, FILM?COATED TABLET
  14. FORLAX [Concomitant]
     Active Substance: POLYETHYLENE GLYCOL 4000
  15. TRAMADOL. [Concomitant]
     Active Substance: TRAMADOL
  16. PANTOPRAZOLE [Concomitant]
     Active Substance: PANTOPRAZOLE

REACTIONS (3)
  - Blood creatine phosphokinase increased [Recovered/Resolved]
  - Acute kidney injury [Recovered/Resolved]
  - Encephalopathy [Recovered/Resolved]

NARRATIVE: CASE EVENT DATE: 20210210
